FAERS Safety Report 9476151 (Version 1)
Quarter: 2013Q3

REPORT INFORMATION
  Report Type: Spontaneous
  Country: US (occurrence: None)
  Receive Date: 20130823
  Receipt Date: 20130823
  Transmission Date: 20140515
  Serious: No
  Sender: FDA-Public Use
  Company Number: None

PATIENT
  Age: 35 Year
  Sex: Female

DRUGS (2)
  1. IMOVAX RABIES [Suspect]
     Route: 030
     Dates: start: 20130105
  2. IMMUNOGLOBULIN HUMAN ANTIRABIES [Suspect]
     Route: 030
     Dates: start: 20130105

REACTIONS (4)
  - Lymphadenopathy [None]
  - Condition aggravated [None]
  - Paraesthesia [None]
  - Dyspnoea [None]
